FAERS Safety Report 12127273 (Version 1)
Quarter: 2016Q1

REPORT INFORMATION
  Report Type: Spontaneous
  Country: US (occurrence: US)
  Receive Date: 20160229
  Receipt Date: 20160229
  Transmission Date: 20160526
  Serious: Yes (Other)
  Sender: FDA-Public Use
  Company Number: US-FRI-1000082840

PATIENT
  Age: 74 Year
  Sex: Male

DRUGS (8)
  1. VITAMINS [Concomitant]
     Active Substance: VITAMINS
  2. UNSPECIFIED CHOLESTEROL MEDICATION [Concomitant]
  3. UNSPECIFIED ACID REFLUX MEDICATION [Concomitant]
  4. FOLIC ACID. [Concomitant]
     Active Substance: FOLIC ACID
  5. VITAMIN B12 [Concomitant]
     Active Substance: CYANOCOBALAMIN
  6. PLAVIX [Concomitant]
     Active Substance: CLOPIDOGREL BISULFATE
  7. NAMENDA XR [Suspect]
     Active Substance: MEMANTINE HYDROCHLORIDE
     Indication: DEMENTIA
     Dosage: 28MG
     Route: 048
     Dates: start: 2013
  8. UNSPECIFIED MEDICATION FOR ENLARGED PROSTATE [Concomitant]
     Indication: PROSTATOMEGALY

REACTIONS (1)
  - Lung neoplasm malignant [Recovered/Resolved]

NARRATIVE: CASE EVENT DATE: 201412
